FAERS Safety Report 7042785-4 (Version None)
Quarter: 2010Q4

REPORT INFORMATION
  Report Type: 
  Country: None (occurrence: None)
  Receive Date: 20101013
  Receipt Date: 20100415
  Transmission Date: 20110411
  Serious: No
  Sender: FDA-Public Use
  Company Number: US-ASTRAZENECA-2010SE16709

PATIENT
  Age: 879 Month
  Sex: Female
  Weight: 86.2 kg

DRUGS (1)
  1. SYMBICORT [Suspect]
     Dosage: 80 MCG, ONE PUFF DAILY
     Route: 055
     Dates: start: 20080101

REACTIONS (2)
  - GINGIVAL BLEEDING [None]
  - ORAL PAIN [None]
